FAERS Safety Report 5824892-4 (Version None)
Quarter: 2008Q3

REPORT INFORMATION
  Report Type: 
  Country: None (occurrence: None)
  Receive Date: 20080728
  Receipt Date: 20080528
  Transmission Date: 20090109
  Serious: No
  Sender: FDA-Public Use
  Company Number: US-BOEHRINGER INGELHEIM GMBH, GERMANY-2007-BP-11495BP

PATIENT
  Sex: Male

DRUGS (5)
  1. FLOMAX [Suspect]
     Indication: BENIGN PROSTATIC HYPERPLASIA
     Route: 048
     Dates: start: 20070613, end: 20080101
  2. FLOMAX [Suspect]
     Indication: PROSTATITIS
  3. CLONAPINE [Concomitant]
     Indication: CONVULSION
     Route: 048
  4. PROZAC [Concomitant]
     Indication: PANIC ATTACK
     Route: 048
  5. NEXIUM [Concomitant]
     Indication: GASTROOESOPHAGEAL REFLUX DISEASE
     Route: 048

REACTIONS (5)
  - BLOOD PRESSURE INCREASED [None]
  - EJACULATION FAILURE [None]
  - HEADACHE [None]
  - PROSTATIC DISORDER [None]
  - SEMEN VOLUME DECREASED [None]
